FAERS Safety Report 6771618-6 (Version None)
Quarter: 2010Q2

REPORT INFORMATION
  Report Type: 
  Country: None (occurrence: None)
  Receive Date: 20100616
  Receipt Date: 20100604
  Transmission Date: 20101027
  Serious: Yes (Other)
  Sender: FDA-Public Use
  Company Number: PHHY2010US36357

PATIENT
  Sex: Female

DRUGS (1)
  1. SANDOSTATIN [Suspect]
     Indication: GASTROINTESTINAL DISORDER

REACTIONS (5)
  - GASTRECTOMY [None]
  - GASTROINTESTINAL DISORDER [None]
  - INJECTION SITE PAIN [None]
  - MALABSORPTION [None]
  - SURGERY [None]
